FAERS Safety Report 15462794 (Version 3)
Quarter: 2019Q1

REPORT INFORMATION
  Report Type: Spontaneous
  Country: US (occurrence: US)
  Receive Date: 20181004
  Receipt Date: 20190128
  Transmission Date: 20190417
  Serious: No
  Sender: FDA-Public Use
  Company Number: US-TEVA-2018-US-959962

PATIENT
  Sex: Female

DRUGS (1)
  1. VENLAFAXINE HCL ER CAPSULES 75MG [Suspect]
     Active Substance: VENLAFAXINE HYDROCHLORIDE
     Dosage: 75 MG
     Route: 065

REACTIONS (12)
  - Product contamination physical [Unknown]
  - Insomnia [Unknown]
  - Decreased appetite [Unknown]
  - Diarrhoea [Unknown]
  - Palpitations [Unknown]
  - Impaired driving ability [Unknown]
  - Impaired work ability [Unknown]
  - Weight decreased [Unknown]
  - Product quality issue [Unknown]
  - Crying [Unknown]
  - Malaise [Unknown]
  - Headache [Unknown]
